FAERS Safety Report 4337856-7 (Version None)
Quarter: 2004Q1

REPORT INFORMATION
  Report Type: 
  Country: None (occurrence: None)
  Receive Date: 20040326
  Receipt Date: 20040112
  Transmission Date: 20041129
  Serious: No
  Sender: FDA-Public Use
  Company Number: 2004UW00513

PATIENT
  Age: 81 Year
  Sex: Female
  Weight: 39.4629 kg

DRUGS (1)
  1. ZESTRIL [Suspect]

REACTIONS (6)
  - BLOOD PRESSURE DECREASED [None]
  - DEHYDRATION [None]
  - DIZZINESS [None]
  - MALAISE [None]
  - MEDICATION ERROR [None]
  - VOMITING [None]
